FAERS Safety Report 8044875 (Version 10)
Quarter: 2013Q4

REPORT INFORMATION
  Report Type: Spontaneous
  Country: US (occurrence: US)
  Receive Date: 20110706
  Receipt Date: 20131008
  Transmission Date: 20140711
  Serious: Yes (Hospitalization, Other)
  Sender: FDA-Public Use
  Company Number: US-009507513-2011SP029794

PATIENT
  Age: 57 Year
  Sex: Female

DRUGS (7)
  1. PEG-INTRON [Suspect]
     Indication: HEPATITIS C
     Dosage: UNK, REDIPEN
     Route: 058
     Dates: start: 20110408, end: 20120406
  2. PEG-INTRON [Suspect]
     Dosage: UNK, REDIPEN
     Route: 058
     Dates: start: 20120907
  3. REBETOL [Suspect]
     Indication: HEPATITIS C
     Dosage: UNK
     Route: 048
     Dates: start: 20110408, end: 20120406
  4. REBETOL [Suspect]
     Dosage: UNK
     Route: 048
     Dates: start: 20120907
  5. VICTRELIS [Suspect]
     Indication: HEPATITIS C
     Dosage: UNK
     Route: 048
     Dates: start: 20110901, end: 20120115
  6. TELAPREVIR [Suspect]
     Indication: HEPATITIS C
     Dosage: UNK
     Dates: start: 20120907, end: 20121130
  7. TELAPREVIR [Suspect]
     Dosage: UNK

REACTIONS (23)
  - Hepatic cirrhosis [Unknown]
  - Intraocular pressure increased [Unknown]
  - Anaemia [Unknown]
  - Transfusion [Unknown]
  - Transfusion [Unknown]
  - Suicidal ideation [Unknown]
  - Oropharyngeal pain [Unknown]
  - Dry mouth [Unknown]
  - Tongue injury [Unknown]
  - Glossodynia [Unknown]
  - Tongue discolouration [Unknown]
  - Hepatitis C [Unknown]
  - Dysgeusia [Unknown]
  - Weight decreased [Unknown]
  - Confusional state [Unknown]
  - Disturbance in attention [Unknown]
  - Memory impairment [Unknown]
  - Viral load increased [Unknown]
  - Pyrexia [Unknown]
  - Chills [Unknown]
  - Drug ineffective [Unknown]
  - Therapeutic response decreased [Unknown]
  - Therapeutic response decreased [Unknown]
